FAERS Safety Report 6031252-2 (Version None)
Quarter: 2009Q1

REPORT INFORMATION
  Report Type: 
  Country: None (occurrence: None)
  Receive Date: 20090108
  Receipt Date: 20081230
  Transmission Date: 20090719
  Serious: Yes (Hospitalization)
  Sender: FDA-Public Use
  Company Number: US-BIOGENIDEC-2008BI005804

PATIENT
  Sex: Female

DRUGS (1)
  1. AVONEX [Suspect]
     Indication: DRUG USE FOR UNKNOWN INDICATION
     Route: 030
     Dates: start: 19970201

REACTIONS (8)
  - AMNESIA [None]
  - BREAST CANCER [None]
  - BRONCHITIS [None]
  - COGNITIVE DISORDER [None]
  - FATIGUE [None]
  - GASTROENTERITIS VIRAL [None]
  - PYREXIA [None]
  - UPPER RESPIRATORY TRACT INFECTION [None]
